FAERS Safety Report 6738939-4 (Version None)
Quarter: 2010Q2

REPORT INFORMATION
  Report Type: 
  Country: None (occurrence: None)
  Receive Date: 20100521
  Receipt Date: 20100331
  Transmission Date: 20101027
  Serious: Yes (Hospitalization)
  Sender: FDA-Public Use
  Company Number: 463202

PATIENT
  Age: 50 Year
  Sex: Male

DRUGS (15)
  1. HEPARIN SODIUM [Suspect]
     Indication: DRUG USE FOR UNKNOWN INDICATION
     Dates: start: 20091001
  2. DIANEAL [Suspect]
     Indication: PERITONEAL DIALYSIS
     Dosage: 12 LITRE, 1 DAY, INTRAPERITONEAL
     Route: 033
     Dates: start: 20070801
  3. AMBIEN [Concomitant]
  4. (BICITRA /00586801/) [Concomitant]
  5. CALCITRIOL [Concomitant]
  6. EPOGEN [Concomitant]
  7. LEVOTHYROXINE SODIUM [Concomitant]
  8. M.V.I. ADULT (MAYNE) (MULTIVITAMIN) [Concomitant]
  9. (EPIRIZOLE) [Concomitant]
  10. FOSRENOL [Concomitant]
  11. PRAVASTATIN [Concomitant]
  12. PREDNISONE TAB [Concomitant]
  13. PROMETHAZINE HYDROCHLORIDE (PROMETHAZINE) [Concomitant]
  14. REGLAN [Concomitant]
  15. (SEVELAMER) [Concomitant]

REACTIONS (5)
  - DRUG HYPERSENSITIVITY [None]
  - GANGRENE [None]
  - LEG AMPUTATION [None]
  - SKIN ULCER [None]
  - THROMBOCYTOPENIA [None]
